FAERS Safety Report 23807056 (Version 1)
Quarter: 2024Q2

REPORT INFORMATION
  Report Type: Spontaneous
  Country: US (occurrence: US)
  Receive Date: 20240502
  Receipt Date: 20240502
  Transmission Date: 20240716
  Serious: No
  Sender: FDA-Public Use
  Company Number: US-RECKITT BENCKISER HEALTHCARE INT LIMITED-RB-136455-2023

PATIENT
  Age: 83 Year
  Sex: Female

DRUGS (1)
  1. MUCINEX DM MAXIMUM STRENGTH [Suspect]
     Active Substance: DEXTROMETHORPHAN HYDROBROMIDE\GUAIFENESIN
     Indication: Pneumonia
     Dosage: TOOK A TOTAL OF TWO OR THREE TABLETS
     Route: 048

REACTIONS (2)
  - Abdominal discomfort [Recovered/Resolved]
  - Therapeutic product ineffective for unapproved indication [Unknown]
